FAERS Safety Report 9952036 (Version 1)
Quarter: 2014Q1

REPORT INFORMATION
  Report Type: Report from Study
  Country: US (occurrence: US)
  Receive Date: 20140304
  Receipt Date: 20140304
  Transmission Date: 20141002
  Serious: No
  Sender: FDA-Public Use
  Company Number: US-ABBVIE-13P-163-1070621-00

PATIENT
  Age: 57 Year
  Sex: Male

DRUGS (6)
  1. HUMIRA [Suspect]
     Indication: CROHN^S DISEASE
     Dates: start: 20130315, end: 20130315
  2. HUMIRA [Suspect]
  3. HCTZ [Concomitant]
     Indication: HYPERTENSION
  4. PROZAC [Concomitant]
     Indication: ANXIETY
  5. PROZAC [Concomitant]
     Indication: DEPRESSION
  6. PENTASA [Concomitant]
     Indication: CROHN^S DISEASE
     Dosage: 8 PILLS DAILY

REACTIONS (1)
  - Viral infection [Not Recovered/Not Resolved]
